FAERS Safety Report 7376010-1 (Version None)
Quarter: 2011Q1

REPORT INFORMATION
  Report Type: 
  Country: None (occurrence: None)
  Receive Date: 20110325
  Receipt Date: 20110314
  Transmission Date: 20110831
  Serious: Yes (Hospitalization)
  Sender: FDA-Public Use
  Company Number: PHHY2011FR09563

PATIENT
  Sex: Female

DRUGS (6)
  1. TEGELINE [Suspect]
     Indication: NEUROPATHY PERIPHERAL
     Dosage: UNK
     Dates: start: 20101103, end: 20101213
  2. BROMAZEPAM [Concomitant]
     Dosage: 2 DF, UNK
     Route: 048
     Dates: start: 20100701
  3. FEMARA [Suspect]
     Indication: BENIGN BREAST NEOPLASM
     Dosage: 1 DF, QD
     Dates: start: 20100729
  4. TEMERIT [Concomitant]
     Dosage: 1 DF, UNK
     Dates: start: 20100701
  5. PREDNISOLONE [Concomitant]
     Indication: NEUROPATHY PERIPHERAL
     Dosage: 40 MG, UNK
     Dates: start: 20100729
  6. TEGELINE [Suspect]
     Dosage: 20 G, QD
     Dates: start: 20110112

REACTIONS (8)
  - HYPOCAPNIA [None]
  - PULMONARY EMBOLISM [None]
  - HYPOXIA [None]
  - DYSPNOEA AT REST [None]
  - HYPOVENTILATION [None]
  - DEHYDRATION [None]
  - DEEP VEIN THROMBOSIS [None]
  - OEDEMA PERIPHERAL [None]
